FAERS Safety Report 10238570 (Version 1)
Quarter: 2014Q2

REPORT INFORMATION
  Report Type: Spontaneous
  Country: HU (occurrence: HU)
  Receive Date: 20140616
  Receipt Date: 20140616
  Transmission Date: 20141212
  Serious: Yes (Hospitalization, Other)
  Sender: FDA-Public Use
  Company Number: HU-PFIZER INC-2014161948

PATIENT
  Age: 34 Year
  Sex: Male

DRUGS (1)
  1. CHAMPIX [Suspect]
     Indication: SMOKING CESSATION THERAPY
     Dosage: UNK
     Route: 048
     Dates: start: 20130723

REACTIONS (8)
  - Epilepsy [Recovered/Resolved]
  - Hypoxia [Unknown]
  - Pulmonary embolism [Unknown]
  - Oropharyngeal pain [Unknown]
  - Nausea [Unknown]
  - Cough [Unknown]
  - Dizziness [Unknown]
  - Pain [Unknown]
